FAERS Safety Report 23886919 (Version 3)
Quarter: 2024Q3

REPORT INFORMATION
  Report Type: Report from Study
  Country: US (occurrence: US)
  Receive Date: 20240523
  Receipt Date: 20240729
  Transmission Date: 20241017
  Serious: Yes (Death, Hospitalization)
  Sender: ABBVIE
  Company Number: US-ABBVIE-5763533

PATIENT
  Sex: Male
  Weight: 68 kg

DRUGS (52)
  1. VENCLEXTA [Suspect]
     Active Substance: VENETOCLAX
     Indication: Acute myeloid leukaemia
     Dosage: LAST ADMIN DATE 2024
     Route: 048
     Dates: start: 20240519
  2. VENCLEXTA [Suspect]
     Active Substance: VENETOCLAX
     Indication: Acute myeloid leukaemia
     Dosage: THEN THE SECOND DAY ON 04-MAY-2024, AT 08:00AM, HE RECEIVED 20MG LAST ADMIN DATE MAY 2024?FORM ST...
     Route: 048
     Dates: start: 20240504
  3. VENCLEXTA [Suspect]
     Active Substance: VENETOCLAX
     Indication: Acute myeloid leukaemia
     Dosage: THEN ON DAY 3 ON 05-MAY-2024, HE GOT 50MG
     Route: 048
     Dates: start: 20240509
  4. VENCLEXTA [Suspect]
     Active Substance: VENETOCLAX
     Indication: Acute myeloid leukaemia
     Route: 048
     Dates: start: 20240503
  5. VENCLEXTA [Suspect]
     Active Substance: VENETOCLAX
     Indication: Acute myeloid leukaemia
     Dosage: AND THEN DAY 4, 05-MAY-2024 AND AFTER, HE GOT 70MG. LAST ADMIN DATE MAY 2024
     Route: 048
     Dates: start: 20240505
  6. VENCLEXTA [Suspect]
     Active Substance: VENETOCLAX
     Indication: Acute myeloid leukaemia
     Dosage: 100MG RATHER THAN 10MG OF VENCLEXTA
     Route: 048
  7. VENCLEXTA [Suspect]
     Active Substance: VENETOCLAX
     Indication: Acute myeloid leukaemia
     Dosage: DISCONTINUED IN MAY 2024?FORM STRENGTH: 20 MILLIGRAM
     Route: 048
     Dates: start: 20240516
  8. VENCLEXTA [Suspect]
     Active Substance: VENETOCLAX
     Indication: Acute myeloid leukaemia
     Dosage: TAKE 2 TABLETS DAILY WITH 1 TABLET BY MOUTH DAILY STRENGTH 10 MG
     Route: 048
     Dates: start: 20240513, end: 20240513
  9. VENCLEXTA [Suspect]
     Active Substance: VENETOCLAX
     Indication: Acute myeloid leukaemia
     Dosage: TAKE 1 TABLETS DAILY WITH 1 TABLET BY MOUTH DAILY LAST ADMIN DATE MAY 2024
     Route: 048
     Dates: start: 20240513
  10. VENCLEXTA [Suspect]
     Active Substance: VENETOCLAX
     Indication: Acute myeloid leukaemia
     Dosage: 50 MG TABLET TAKE 1 TABLET (50 MG TOTAL) BY MOUTH DAILY (WITH? BREAKFAST) WITH 1 OTHER  VENETOCLA...
     Route: 048
     Dates: start: 20240506, end: 20240515
  11. VENCLEXTA [Suspect]
     Active Substance: VENETOCLAX
     Indication: Acute myeloid leukaemia
     Dosage: THEN THE SECOND DAY ON 04-MAY-2024, AT 08:00AM, HE RECEIVED 20MG LAST ADMIN DATE MAY 2024?FORM ST...
     Route: 048
     Dates: start: 20240513
  12. MEGACE [Concomitant]
     Active Substance: MEGESTROL ACETATE
     Indication: Acute leukaemia
     Route: 048
     Dates: start: 20240513
  13. MELATONIN [Concomitant]
     Active Substance: MELATONIN
     Indication: Sleep disorder
     Dosage: LAST ADMIN DATE 2024
     Route: 048
     Dates: start: 20240424
  14. MELATONIN [Concomitant]
     Active Substance: MELATONIN
     Indication: Sleep disorder
     Dosage: NIGHTLY AS NEEDED,
     Route: 048
     Dates: start: 20240512
  15. NAMENDA [Concomitant]
     Active Substance: MEMANTINE HYDROCHLORIDE
     Indication: Product used for unknown indication
     Dosage: LAST ADMIN DATE 2024
     Route: 048
     Dates: start: 20240425
  16. NAMENDA [Concomitant]
     Active Substance: MEMANTINE HYDROCHLORIDE
     Indication: Product used for unknown indication
     Dosage: LAST ADMIN DATE APR 2024
     Route: 048
     Dates: start: 20240409
  17. NAMENDA [Concomitant]
     Active Substance: MEMANTINE HYDROCHLORIDE
     Indication: Product used for unknown indication
     Route: 048
     Dates: start: 20240516
  18. MIRALAX [Concomitant]
     Active Substance: POLYETHYLENE GLYCOL 3350
     Indication: Constipation
     Dosage: MIXED WITH 8OZ WATER, WAS GIVEN 15-MAY-2024 AND 16-MAY-2024 ;ONGOING: YES
     Route: 048
     Dates: start: 20240505
  19. AMBIEN [Concomitant]
     Active Substance: ZOLPIDEM TARTRATE
     Indication: Insomnia
     Route: 048
     Dates: start: 20240424
  20. ZYLOPRIM [Concomitant]
     Active Substance: ALLOPURINOL
     Indication: Prophylaxis
     Dosage: START ONE DAY PRIOR TO PRIOR TO TREATMENT CYCLE ONE AND CONTINUE FOR PREVENTION OF TUMOR? LYSIS ;...
     Route: 048
     Dates: start: 20240426
  21. XYZAL [Concomitant]
     Active Substance: LEVOCETIRIZINE DIHYDROCHLORIDE
     Indication: Rhinitis allergic
     Dosage: EVERY EVENING, BUT THE PATIENT IS NOT GETTING IT IN THE HOSPITAL ;ONGOING: NO
     Route: 048
     Dates: start: 20240205
  22. PROCHLORAZINE [Concomitant]
     Indication: Vomiting
     Dosage: TIME INTERVAL: 0.16666667 HOURS: EVERY 6 HOURS ;ONGOING: YES
     Route: 048
     Dates: start: 20240429
  23. NOXAFIL [Concomitant]
     Active Substance: POSACONAZOLE
     Indication: Prophylaxis
     Dosage: WITH BREAKFAST, LAST ADMIN IN 2024
     Route: 048
     Dates: start: 20240429
  24. NOXAFIL [Concomitant]
     Active Substance: POSACONAZOLE
     Indication: Prophylaxis
     Route: 048
     Dates: start: 20240516
  25. SODIUM CHLORIDE [Concomitant]
     Active Substance: SODIUM CHLORIDE
     Indication: Product used for unknown indication
     Dosage: TIME INTERVAL: AS NECESSARY: FLUSH BEFORE AND AFTER IV MEDICATION AND AS NEEDED 250 ML BAG ;ONGOI...
     Route: 050
     Dates: start: 20240505
  26. SODIUM CHLORIDE [Concomitant]
     Active Substance: SODIUM CHLORIDE
     Indication: Product used for unknown indication
     Dosage: TIME INTERVAL: AS NECESSARY: FLUSH BEFORE AND AFTER IV MEDICATION AND AS NEEDED 250 ML BAG ;ONGOI...
     Route: 050
     Dates: start: 20240516
  27. CARAFATE [Concomitant]
     Active Substance: SUCRALFATE
     Indication: Product used for unknown indication
     Dosage: 1GM IN 10ML SUSPENSION 4 TIMES DAILY BEFORE MEALS AND NIGHTLY ;ONGOING: YES
     Route: 048
     Dates: start: 20240507
  28. HYTRIN [Concomitant]
     Active Substance: TERAZOSIN HYDROCHLORIDE
     Indication: Nausea
     Route: 048
     Dates: start: 20240425
  29. HYTRIN [Concomitant]
     Active Substance: TERAZOSIN HYDROCHLORIDE
     Indication: Nausea
     Dosage: NIGHTLY
     Route: 048
     Dates: start: 20230324
  30. AZACITIDINE [Suspect]
     Active Substance: AZACITIDINE
     Indication: Acute myeloid leukaemia
     Dosage: DAY 1-7?FORM STRENGTH: 145 MILLIGRAM
     Route: 042
     Dates: start: 20240204
  31. AZACITIDINE [Suspect]
     Active Substance: AZACITIDINE
     Indication: Acute myeloid leukaemia
     Dosage: DAYS 1-7 EVERY 28 DAYS IV OVER 10 MINUTES GIVEN 29-APR-2024 THROUGH 05-?MAY-2024 ;ONGOING: YES?FO...
     Route: 042
     Dates: start: 20240429
  32. TYLENOL [Concomitant]
     Active Substance: ACETAMINOPHEN
     Indication: Pain
     Dosage: TIME INTERVAL: AS NECESSARY: EVERY 4 HOURS AS NEEDED ;ONGOING: YES
     Route: 048
     Dates: start: 20240424
  33. ZOVIRAX [Concomitant]
     Active Substance: ACYCLOVIR
     Indication: Antiviral prophylaxis
     Dosage: TIME INTERVAL: 0.33333333 DAYS
     Route: 048
     Dates: start: 20240425
  34. MAALOX ANTACID [Concomitant]
     Active Substance: ALUMINUM HYDROXIDE\DIMETHICONE\MAGNESIUM HYDROXIDE
     Indication: Dyspepsia
     Dosage: TIME INTERVAL: AS NECESSARY: 200-200-20MG IN 5ML SUSPENSION, GIVEN A DOSE ON 02-MAY-2024 ;ONGOING...
     Route: 048
     Dates: start: 20240424
  35. DEXTROSE AND SODIUM CHLORIDE [Concomitant]
     Active Substance: DEXTROSE MONOHYDRATE\SODIUM CHLORIDE
     Indication: Product used for unknown indication
     Dosage: DEXTROSE 5% AND SODIUM CHLORIDE 0.9% CONTINUOUS INFUSION 50ML/HOUR ;ONGOING: YES
     Route: 042
     Dates: start: 20240516
  36. CARDIZEM CD [Concomitant]
     Active Substance: DILTIAZEM HYDROCHLORIDE
     Indication: Hypertension
     Dosage: 24 HOUR CAPSULE, LAST DOSE 16-MAY-2024, HOLD FOR SYSTOLIC BP LEST THAN100 OR HEART? RATE LESS THA...
     Route: 048
     Dates: start: 20240429
  37. COLACE [Concomitant]
     Active Substance: DOCUSATE SODIUM
     Indication: Constipation
     Dosage: AS NEEDED ;ONGOING: YES
     Route: 048
     Dates: start: 20240504
  38. SENOKOT-S [Concomitant]
     Active Substance: DOCUSATE SODIUM\SENNOSIDES
     Indication: Constipation
     Dosage: 50MG DOCUSATE WITH 8.6MG SENNA 2 50MG TABLETS DAILY ;ONGOING: YES
     Route: 048
     Dates: start: 20240430
  39. ARICEPT [Concomitant]
     Active Substance: DONEPEZIL HYDROCHLORIDE
     Indication: Product used for unknown indication
     Route: 048
     Dates: start: 20230925
  40. FENTANYL [Concomitant]
     Active Substance: FENTANYL\FENTANYL CITRATE
     Indication: Procedural pain
     Dosage: 25MCG TO 100MCG IV AS NEEDED FOR PAIN FOR PROCEDURE (BONE MARROW BIOPSY), GOT 3? DOSES ON 25-APR-...
     Route: 042
     Dates: start: 20240425, end: 20240425
  41. FOLIC ACID [Concomitant]
     Active Substance: FOLIC ACID
     Indication: Folate deficiency
     Route: 048
     Dates: start: 20240425
  42. FOLIC ACID [Concomitant]
     Active Substance: FOLIC ACID
     Indication: Folate deficiency
     Route: 048
     Dates: start: 20230925
  43. HEPARIN [Concomitant]
     Active Substance: HEPARIN SODIUM
     Indication: Product used for unknown indication
     Dosage: TIME INTERVAL: AS NECESSARY: 100UNITS/ML IV FLUSH 500 UNITS AT A TIME AS NEEDED FOR LINE CARE ;ON...
     Route: 042
     Dates: start: 20240505
  44. XOPENEX [Concomitant]
     Active Substance: LEVALBUTEROL HYDROCHLORIDE
     Indication: Wheezing
     Dosage: TIME INTERVAL: AS NECESSARY: NEBULIZER SOLUTION EVERY 4 HOURS AS NEEDED GIVEN ONCE ON 28-APR-2024...
     Route: 055
     Dates: start: 20240428
  45. LEVAQUIN [Concomitant]
     Active Substance: LEVOFLOXACIN
     Indication: Prophylaxis
     Route: 048
     Dates: start: 20240430
  46. CHLORHEXIDINE GLUCONATE [Concomitant]
     Active Substance: CHLORHEXIDINE GLUCONATE
     Indication: Product used for unknown indication
     Dosage: 2% PADS 1 EACH
     Route: 061
     Dates: start: 20240425
  47. NORCO [Concomitant]
     Active Substance: ACETAMINOPHEN\HYDROCODONE BITARTRATE
     Indication: Pain
     Dosage: ONE TABLET EVERY 4 HOURS AS NEEDED
     Route: 048
     Dates: start: 20240424
  48. DILAUDID [Concomitant]
     Active Substance: HYDROMORPHONE HYDROCHLORIDE
     Indication: Product used for unknown indication
     Route: 042
     Dates: start: 20240424
  49. ZOFRAN [Concomitant]
     Active Substance: ONDANSETRON HYDROCHLORIDE
     Indication: Nausea
     Dosage: DISINTEGRATING TABLET 4 MG EVERY 6 HOURS PRN?ADMIN INSTRUCTIONS: FIRST LINE AGENT
     Route: 048
     Dates: start: 20240424
  50. ZOFRAN [Concomitant]
     Active Substance: ONDANSETRON HYDROCHLORIDE
     Indication: Nausea
     Route: 048
     Dates: start: 20240429
  51. SYNTHROID [Suspect]
     Active Substance: LEVOTHYROXINE SODIUM
     Indication: Product used for unknown indication
     Dosage: 50 MCG TABLE TAKE 1 TABLET BY MOUTH EVERY MORNING (BEFORE BREAKFAST).
     Route: 048
     Dates: start: 20230825
  52. SYNTHROID [Suspect]
     Active Substance: LEVOTHYROXINE SODIUM
     Indication: Product used for unknown indication
     Dosage: 50 MCG TABLE TAKE 1 TABLET BY MOUTH EVERY MORNING (BEFORE BREAKFAST).
     Route: 048
     Dates: start: 20240426

REACTIONS (10)
  - Death [Fatal]
  - Incorrect dose administered [Unknown]
  - Pruritus [Unknown]
  - Product use issue [Unknown]
  - Thrombocytopenia [Unknown]
  - Chronic kidney disease [Not Recovered/Not Resolved]
  - Decreased appetite [Unknown]
  - Anaemia [Unknown]
  - Depression [Unknown]
  - Leukocytosis [Unknown]

NARRATIVE: CASE EVENT DATE: 20240101
